FAERS Safety Report 20827145 (Version 1)
Quarter: 2022Q2

REPORT INFORMATION
  Report Type: Other
  Country: CZ (occurrence: None)
  Receive Date: 20220513
  Receipt Date: 20220513
  Transmission Date: 20220721
  Serious: Yes (Hospitalization)
  Sender: FDA-Public Use
  Company Number: CZ-Merck Healthcare KGaA-9319196

PATIENT
  Sex: Female
  Weight: 80 kg

DRUGS (7)
  1. METFORMIN [Suspect]
     Active Substance: METFORMIN HYDROCHLORIDE
     Indication: Type 2 diabetes mellitus
  2. CANAGLIFLOZIN [Suspect]
     Active Substance: CANAGLIFLOZIN
     Indication: Type 2 diabetes mellitus
  3. CANAGLIFLOZIN [Suspect]
     Active Substance: CANAGLIFLOZIN
  4. INSULIN GLARGINE [Concomitant]
     Active Substance: INSULIN GLARGINE
     Indication: Type 2 diabetes mellitus
  5. INSULIN GLARGINE [Concomitant]
     Active Substance: INSULIN GLARGINE
  6. INSULIN GLULISINE [Concomitant]
     Active Substance: INSULIN GLULISINE
     Indication: Type 2 diabetes mellitus
     Dosage: 18,16,16 UNITS PER DAY
  7. INSULIN GLULISINE [Concomitant]
     Active Substance: INSULIN GLULISINE
     Dosage: REDUCED TO 14,10,10 UNITS PER DAY

REACTIONS (1)
  - Diabetic ketoacidosis [Recovered/Resolved]
